FAERS Safety Report 4435124-6 (Version None)
Quarter: 2004Q3

REPORT INFORMATION
  Report Type: 
  Country: None (occurrence: None)
  Receive Date: 20040826
  Receipt Date: 20040817
  Transmission Date: 20050211
  Serious: Yes (Death, Hospitalization)
  Sender: FDA-Public Use
  Company Number: F01200402352

PATIENT
  Age: 63 Year
  Sex: Male

DRUGS (12)
  1. (OXALIPLATIN) - SOLUTION [Suspect]
     Indication: NON-SMALL CELL LUNG CANCER STAGE IIIB
     Dosage: 140 MG Q2W
     Route: 042
     Dates: start: 20040721, end: 20040721
  2. (OXALIPLATIN) - SOLUTION [Suspect]
     Indication: NON-SMALL CELL LUNG CANCER STAGE IV
     Dosage: 140 MG Q2W
     Route: 042
     Dates: start: 20040721, end: 20040721
  3. (GEMCITABINE) - SOLUTION [Suspect]
     Dosage: 2000 MG Q2W
     Route: 042
     Dates: start: 20040721, end: 20040721
  4. ZESTRIL [Concomitant]
  5. TOREM (TORASEMIDE) [Concomitant]
  6. METOCLOPRAMIDE HYDROCHLORIDE [Concomitant]
  7. NEXIUM [Concomitant]
  8. IMPORTAL (LACTITOL) [Concomitant]
  9. LAXOBERON (SODIUM PICOSULFATE) [Concomitant]
  10. NICOTINELL TTS (NICOTINE) [Concomitant]
  11. CIPROXIN (CIPROFLOXACIN) [Concomitant]
  12. DIPYRONE TAB [Concomitant]

REACTIONS (21)
  - ALANINE AMINOTRANSFERASE INCREASED [None]
  - ANOREXIA [None]
  - ASPARTATE AMINOTRANSFERASE INCREASED [None]
  - ATRIAL FIBRILLATION [None]
  - BLOOD ALKALINE PHOSPHATASE INCREASED [None]
  - BLOOD CREATININE INCREASED [None]
  - CARDIAC DISORDER [None]
  - CARDIAC FAILURE [None]
  - CARDIOPULMONARY FAILURE [None]
  - DEHYDRATION [None]
  - DYSGEUSIA [None]
  - DYSPNOEA [None]
  - GAMMA-GLUTAMYLTRANSFERASE INCREASED [None]
  - INTERSTITIAL LUNG DISEASE [None]
  - LIVER DISORDER [None]
  - MALIGNANT PLEURAL EFFUSION [None]
  - NAUSEA [None]
  - NEOPLASM PROGRESSION [None]
  - PERICARDIAL EFFUSION MALIGNANT [None]
  - PNEUMONIA [None]
  - RENAL FAILURE [None]
